FAERS Safety Report 9676554 (Version 2)
Quarter: 2013Q4

REPORT INFORMATION
  Report Type: Report from Study
  Country: HU (occurrence: HU)
  Receive Date: 20131107
  Receipt Date: 20131107
  Transmission Date: 20140711
  Serious: Yes (Death, Other)
  Sender: FDA-Public Use
  Company Number: HU-ABBVIE-11P-076-0835817-00

PATIENT
  Age: 56 Year
  Sex: Male
  Weight: 65 kg

DRUGS (3)
  1. HUMIRA 40 MG/ 0.8 ML PRE-FILLED SYRINGE [Suspect]
     Indication: PSORIASIS
     Route: 058
     Dates: start: 20100928, end: 20110629
  2. TERVALON [Concomitant]
     Indication: HYPERTENSION
     Route: 048
  3. SILEGON [Concomitant]
     Indication: PRODUCT USED FOR UNKNOWN INDICATION
     Route: 048

REACTIONS (5)
  - Death [Fatal]
  - Metastases to central nervous system [Unknown]
  - Gait disturbance [Not Recovered/Not Resolved]
  - Polyneuropathy alcoholic [Unknown]
  - Lung neoplasm malignant [Unknown]
